FAERS Safety Report 8849535 (Version 1)
Quarter: 2012Q4

REPORT INFORMATION
  Report Type: 
  Country: FR (occurrence: FR)
  Receive Date: 20121019
  Receipt Date: 20121019
  Transmission Date: 20130627
  Serious: Yes (Hospitalization)
  Sender: FDA-Public Use
  Company Number: FR-PFIZER INC-2012259329

PATIENT
  Age: 76 Year
  Sex: Female

DRUGS (15)
  1. INIPOMP [Suspect]
     Dosage: 40 mg, 1x/day
     Route: 048
  2. LASILIX [Suspect]
     Dosage: 120 mg, daily
     Route: 048
  3. DEROXAT [Suspect]
     Dosage: 40 mg, daily
     Route: 048
  4. CORVASAL [Concomitant]
     Dosage: 4 mg, UNK
  5. LEVOTHYROX [Concomitant]
     Dosage: 75 mcg, UNK
  6. NORMACOL [Concomitant]
     Dosage: UNK
  7. MUCOMYST [Concomitant]
     Dosage: UNK
  8. VICTOZA [Concomitant]
     Dosage: 6 mg/ml
  9. LANTUS [Concomitant]
     Dosage: UNK
  10. NORFLOXACIN [Concomitant]
     Dosage: UNK
  11. PREVISCAN [Concomitant]
     Dosage: 20 mg, UNK
  12. TEMESTA [Concomitant]
     Dosage: 1 mg, UNK
  13. TERCIAN [Concomitant]
     Dosage: 25 units unknown, UNK
  14. IMOVANE [Concomitant]
     Dosage: 7.5 mg, UNK
  15. AMITRIPTYLINE [Concomitant]
     Dosage: UNK

REACTIONS (3)
  - Dehydration [Recovered/Resolved]
  - Confusional state [Recovered/Resolved]
  - Hyponatraemia [Recovered/Resolved]
